FAERS Safety Report 8969341 (Version 1)
Quarter: 2012Q4

REPORT INFORMATION
  Report Type: 
  Country: US (occurrence: US)
  Receive Date: 20121218
  Receipt Date: 20121218
  Transmission Date: 20130627
  Serious: No
  Sender: FDA-Public Use
  Company Number: US-BRISTOL-MYERS SQUIBB COMPANY-16282303

PATIENT
  Age: 6 Year
  Sex: Female
  Weight: 31.75 kg

DRUGS (1)
  1. ABILIFY [Suspect]
     Indication: ATTENTION DEFICIT/HYPERACTIVITY DISORDER
     Dosage: Approx 2 weeks ago
     Dates: start: 201103

REACTIONS (1)
  - Alopecia [Recovered/Resolved]
